FAERS Safety Report 9138865 (Version 1)
Quarter: 2013Q1

REPORT INFORMATION
  Report Type: Spontaneous
  Country: US (occurrence: US)
  Receive Date: 20130305
  Receipt Date: 20130305
  Transmission Date: 20140127
  Serious: No
  Sender: FDA-Public Use
  Company Number: US-PFIZER INC-2013074796

PATIENT
  Age: 42 Year
  Sex: Female
  Weight: 54.42 kg

DRUGS (1)
  1. ADVIL PM [Suspect]
     Indication: INSOMNIA
     Dosage: 200 MG, UNK
     Dates: start: 201302

REACTIONS (2)
  - Swelling face [Recovered/Resolved]
  - Ocular hyperaemia [Not Recovered/Not Resolved]
